FAERS Safety Report 8177721-0 (Version None)
Quarter: 2012Q1

REPORT INFORMATION
  Report Type: 
  Country: None (occurrence: None)
  Receive Date: 20120301
  Receipt Date: 20120227
  Transmission Date: 20120608
  Serious: Yes (Hospitalization, Disabling)
  Sender: FDA-Public Use
  Company Number: PHHO2010CZ02582

PATIENT
  Sex: Male
  Weight: 87 kg

DRUGS (5)
  1. AVASTIN [Suspect]
     Indication: METASTATIC RENAL CELL CARCINOMA
     Dosage: 880 MG, UNK
     Route: 042
     Dates: start: 20100113
  2. GELCLAIR [Concomitant]
     Indication: STOMATITIS
     Dosage: 1 DF, UNK
     Dates: start: 20100127
  3. AFINITOR [Suspect]
     Dosage: 5 MG, UNK
     Route: 048
     Dates: start: 20100122
  4. AFINITOR [Suspect]
     Dosage: UNSPECIFIED DOSE
     Route: 048
     Dates: start: 20100211, end: 20100215
  5. AFINITOR [Suspect]
     Indication: METASTATIC RENAL CELL CARCINOMA
     Dosage: 10 MG, UNK
     Route: 048
     Dates: start: 20100113

REACTIONS (3)
  - OESOPHAGEAL ULCER [None]
  - GASTROOESOPHAGEAL REFLUX DISEASE [None]
  - HYPERPLASIA [None]
